FAERS Safety Report 18021344 (Version 5)
Quarter: 2021Q1

REPORT INFORMATION
  Report Type: Other
  Country: US (occurrence: US)
  Receive Date: 20200714
  Receipt Date: 20210311
  Transmission Date: 20210419
  Serious: Yes (Hospitalization, Other)
  Sender: FDA-Public Use
  Company Number: US-ROCHE-2152562

PATIENT
  Age: 59 Year
  Sex: Female
  Weight: 43.13 kg

DRUGS (33)
  1. MONTELUKAST SODIUM. [Concomitant]
     Active Substance: MONTELUKAST SODIUM
  2. VITAMIN C [Concomitant]
     Active Substance: ASCORBIC ACID
  3. PROLIA [Concomitant]
     Active Substance: DENOSUMAB
  4. BENADRYL [Concomitant]
     Active Substance: DIPHENHYDRAMINE HYDROCHLORIDE
  5. BUTORPHANOL [Concomitant]
     Active Substance: BUTORPHANOL
     Indication: HEADACHE
     Dosage: ONE SPRAY EVERY 4?6 HOURS AS NEEDED
     Route: 055
  6. DIAZEPAM. [Concomitant]
     Active Substance: DIAZEPAM
     Indication: MUSCLE SPASMS
  7. SPIRIVA [Concomitant]
     Active Substance: TIOTROPIUM BROMIDE MONOHYDRATE
     Indication: CHRONIC OBSTRUCTIVE PULMONARY DISEASE
     Route: 048
  8. OMEPRAZOLE. [Concomitant]
     Active Substance: OMEPRAZOLE
  9. BUTORPHANOL TARTRATE. [Concomitant]
     Active Substance: BUTORPHANOL TARTRATE
     Indication: HEADACHE
     Dosage: 1 SPRAY IN ONE NOSTRIL EVERY 4 HOURS AS NEEDED
     Route: 045
  10. WARFARIN [Concomitant]
     Active Substance: WARFARIN
     Indication: PROTEIN S DEFICIENCY
     Dosage: 3 MG (4 DAYS/WEEK)
     Route: 048
     Dates: end: 2019
  11. DIAZEPAM. [Concomitant]
     Active Substance: DIAZEPAM
     Indication: MUSCLE SPASMS
     Dosage: 10 MG ONCE A DAY AT BEDTIME AS NEEDED
     Route: 048
  12. OCREVUS [Suspect]
     Active Substance: OCRELIZUMAB
     Dosage: FIRST SPLIT DOSE
     Route: 042
     Dates: start: 2017
  13. OXYGEN. [Concomitant]
     Active Substance: OXYGEN
     Dosage: 2 LITER AT NIGHT
  14. METOPROLOL. [Concomitant]
     Active Substance: METOPROLOL
     Indication: BARRETT^S OESOPHAGUS
     Route: 048
  15. WARFARIN [Concomitant]
     Active Substance: WARFARIN
     Dosage: 6 MG (2 DAYS/WEEK)
     Dates: end: 2019
  16. OCREVUS [Suspect]
     Active Substance: OCRELIZUMAB
     Route: 065
  17. ALBUTEROL SULFATE. [Concomitant]
     Active Substance: ALBUTEROL SULFATE
     Indication: CHRONIC OBSTRUCTIVE PULMONARY DISEASE
     Dosage: 2 PUFFS EVERY 4 TO 6 HOURS AS NEEDED
     Route: 055
  18. OCREVUS [Suspect]
     Active Substance: OCRELIZUMAB
     Indication: PRIMARY PROGRESSIVE MULTIPLE SCLEROSIS
     Route: 042
     Dates: start: 20190618
  19. HIZENTRA [Concomitant]
     Active Substance: HUMAN IMMUNOGLOBULIN G
     Route: 065
     Dates: start: 201911
  20. VITAMIN B12 [Concomitant]
     Active Substance: CYANOCOBALAMIN
  21. OCREVUS [Suspect]
     Active Substance: OCRELIZUMAB
     Route: 042
     Dates: start: 2017
  22. ELIQUIS [Concomitant]
     Active Substance: APIXABAN
     Dates: start: 2019
  23. RESTORIL [Concomitant]
     Active Substance: TEMAZEPAM
     Dosage: AT BED TIME PRN
  24. CYCLOBENZAPRINE. [Concomitant]
     Active Substance: CYCLOBENZAPRINE
     Indication: FIBROMYALGIA
     Dates: start: 1990
  25. OCREVUS [Suspect]
     Active Substance: OCRELIZUMAB
     Indication: RELAPSING-REMITTING MULTIPLE SCLEROSIS
     Dosage: FULL DOSE?4 TO 5 HOUR INFUSION
     Route: 042
     Dates: start: 201801
  26. OCREVUS [Suspect]
     Active Substance: OCRELIZUMAB
     Route: 042
     Dates: start: 20170710
  27. POTASSIUM [Concomitant]
     Active Substance: POTASSIUM
  28. ELIQUIS [Concomitant]
     Active Substance: APIXABAN
     Indication: PROTEIN S DEFICIENCY
  29. ACETAMINOPHEN. [Concomitant]
     Active Substance: ACETAMINOPHEN
  30. POTASSIUM CHLORIDE. [Concomitant]
     Active Substance: POTASSIUM CHLORIDE
  31. TEMAZEPAM. [Concomitant]
     Active Substance: TEMAZEPAM
     Dosage: 15MG ONCE A DAY AT BED AS NEEDED
  32. FLEXERIL [Concomitant]
     Active Substance: CYCLOBENZAPRINE HYDROCHLORIDE
  33. VITAMIN D2 [Concomitant]
     Active Substance: ERGOCALCIFEROL
     Indication: VITAMIN D DEFICIENCY
     Dosage: 50,000 UNITS
     Route: 048

REACTIONS (32)
  - Chronic obstructive pulmonary disease [Recovered/Resolved]
  - Nausea [Recovered/Resolved]
  - Weight decreased [Not Recovered/Not Resolved]
  - Fall [Unknown]
  - Dry mouth [Not Recovered/Not Resolved]
  - Tooth loss [Not Recovered/Not Resolved]
  - Muscle spasms [Not Recovered/Not Resolved]
  - Gait disturbance [Not Recovered/Not Resolved]
  - Paraesthesia [Not Recovered/Not Resolved]
  - Arthropathy [Not Recovered/Not Resolved]
  - Arthralgia [Not Recovered/Not Resolved]
  - Neurogenic bladder [Not Recovered/Not Resolved]
  - Pain [Not Recovered/Not Resolved]
  - Multiple sclerosis [Unknown]
  - Electrocardiogram abnormal [Unknown]
  - Dysstasia [Not Recovered/Not Resolved]
  - Impaired work ability [Not Recovered/Not Resolved]
  - Back pain [Not Recovered/Not Resolved]
  - Immune system disorder [Not Recovered/Not Resolved]
  - Barrett^s oesophagus [Not Recovered/Not Resolved]
  - Therapeutic response decreased [Unknown]
  - Memory impairment [Not Recovered/Not Resolved]
  - Contusion [Not Recovered/Not Resolved]
  - Fatigue [Not Recovered/Not Resolved]
  - Muscular weakness [Recovered/Resolved]
  - Skin abrasion [Recovered/Resolved]
  - Hypothyroidism [Not Recovered/Not Resolved]
  - Multiple sclerosis relapse [Unknown]
  - Urinary tract infection [Recovered/Resolved]
  - Hypoaesthesia [Not Recovered/Not Resolved]
  - Headache [Not Recovered/Not Resolved]
  - Hallucination [Recovered/Resolved]

NARRATIVE: CASE EVENT DATE: 2018
